FAERS Safety Report 9307471 (Version 1)
Quarter: 2013Q2

REPORT INFORMATION
  Report Type: Spontaneous
  Country: CA (occurrence: CA)
  Receive Date: 20130524
  Receipt Date: 20130524
  Transmission Date: 20140414
  Serious: Yes (Other)
  Sender: FDA-Public Use
  Company Number: PHHY2013CA051741

PATIENT
  Sex: Female

DRUGS (1)
  1. FIORINAL-C 1/2 [Suspect]
     Dosage: UNK UKN, UNK

REACTIONS (1)
  - Pulmonary embolism [Unknown]
